FAERS Safety Report 4447861-8 (Version None)
Quarter: 2004Q3

REPORT INFORMATION
  Report Type: 
  Country: None (occurrence: None)
  Receive Date: 20040909
  Receipt Date: 20040827
  Transmission Date: 20050211
  Serious: Yes (Hospitalization)
  Sender: FDA-Public Use
  Company Number: 2004UW14478

PATIENT
  Age: 66 Year
  Sex: Female

DRUGS (4)
  1. CRESTOR [Suspect]
     Indication: BLOOD CHOLESTEROL INCREASED
     Dosage: 10 MG PO
     Route: 048
  2. THYROID MEDICATION [Concomitant]
  3. MICARDIS [Concomitant]
  4. TOPROL-XL [Concomitant]

REACTIONS (3)
  - DIABETIC KETOACIDOSIS [None]
  - NEPHROTIC SYNDROME [None]
  - RENAL TUBULAR NECROSIS [None]
